FAERS Safety Report 26020788 (Version 1)
Quarter: 2025Q4

REPORT INFORMATION
  Report Type: Spontaneous
  Country: EU (occurrence: EU)
  Receive Date: 20251110
  Receipt Date: 20251110
  Transmission Date: 20260118
  Serious: Yes (Hospitalization)
  Sender: MYLAN
  Company Number: None

PATIENT
  Age: 53 Year
  Sex: Male
  Weight: 112 kg

DRUGS (4)
  1. ATORVASTATIN [Suspect]
     Active Substance: ATORVASTATIN
     Indication: Hypercholesterolaemia
     Dosage: 1 DOSAGE FORM, QD (1 X PER DAY 1 PIECE)
     Dates: start: 20230101, end: 20250929
  2. ATORVASTATIN [Suspect]
     Active Substance: ATORVASTATIN
     Dosage: 1 DOSAGE FORM, QD (1 X PER DAY 1 PIECE)
     Route: 048
     Dates: start: 20230101, end: 20250929
  3. ATORVASTATIN [Suspect]
     Active Substance: ATORVASTATIN
     Dosage: 1 DOSAGE FORM, QD (1 X PER DAY 1 PIECE)
     Route: 048
     Dates: start: 20230101, end: 20250929
  4. ATORVASTATIN [Suspect]
     Active Substance: ATORVASTATIN
     Dosage: 1 DOSAGE FORM, QD (1 X PER DAY 1 PIECE)
     Dates: start: 20230101, end: 20250929

REACTIONS (2)
  - Necrotising myositis [Recovering/Resolving]
  - Rhabdomyolysis [Recovering/Resolving]
